FAERS Safety Report 18004343 (Version 3)
Quarter: 2020Q3

REPORT INFORMATION
  Report Type: Spontaneous
  Country: DE (occurrence: BR)
  Receive Date: 20200709
  Receipt Date: 20200904
  Transmission Date: 20201103
  Serious: Yes (Hospitalization)
  Sender: FDA-Public Use
  Company Number: BR-ELI_LILLY_AND_COMPANY-BR202007003070

PATIENT
  Age: 50 Year
  Sex: Male
  Weight: 85 kg

DRUGS (5)
  1. ERBITUX [Suspect]
     Active Substance: CETUXIMAB
     Indication: NASAL SINUS CANCER
     Dosage: 400 MG/M2, UNKNOWN
     Route: 042
     Dates: start: 20200127
  2. DIPYRONE [Concomitant]
     Active Substance: DIPYRONE
     Indication: PRODUCT USED FOR UNKNOWN INDICATION
     Dosage: 500 MG, QID
  3. DOCETAXEL. [Concomitant]
     Active Substance: DOCETAXEL
     Indication: NASAL SINUS CANCER
     Dosage: UNK
     Dates: start: 20200123
  4. CODEINE [Concomitant]
     Active Substance: CODEINE
     Indication: PRODUCT USED FOR UNKNOWN INDICATION
     Dosage: 10 MG, QID
  5. CISPLATIN. [Concomitant]
     Active Substance: CISPLATIN
     Indication: NASAL SINUS CANCER
     Dosage: UNK
     Dates: start: 20200123

REACTIONS (7)
  - Rash [Unknown]
  - Generalised tonic-clonic seizure [Unknown]
  - Pyrexia [Unknown]
  - Oxygen saturation decreased [Unknown]
  - Tremor [Unknown]
  - Tachycardia [Unknown]
  - Hypotension [Unknown]

NARRATIVE: CASE EVENT DATE: 20200623
